FAERS Safety Report 9288095 (Version 2)
Quarter: 2013Q2

REPORT INFORMATION
  Report Type: Spontaneous
  Country: US (occurrence: None)
  Receive Date: 20130510
  Receipt Date: 20130626
  Transmission Date: 20140414
  Serious: Yes (Death)
  Sender: FDA-Public Use
  Company Number: 2013-148

PATIENT
  Age: 28 Year
  Sex: Female
  Weight: 82.1 kg

DRUGS (16)
  1. FAZACLO ODT CLOZAPINE [Suspect]
     Indication: PSYCHOTIC DISORDER
     Dosage: 100-200 MG, QD, ORAL
     Route: 048
     Dates: start: 20090904, end: 20120819
  2. CIPRO [Suspect]
     Indication: URINARY TRACT INFECTION
  3. ASPIRIN [Concomitant]
  4. CALCARB WITH VITAMIN D [Concomitant]
  5. FLUTICASONE [Concomitant]
  6. VITAMIN B9 [Concomitant]
  7. ESCITALOPRAM OXALATE (ESCITALOPRAM OXALATE) [Concomitant]
  8. FAMOTIDINE [Concomitant]
  9. LEVOTHROID [Suspect]
  10. BUPROPION [Concomitant]
  11. OCELLA [Concomitant]
  12. NAPROXEN [Concomitant]
  13. GUAIFENESIN DM [Concomitant]
  14. MEMANTINE [Concomitant]
  15. POLYETHYLENE GLYCOL (MACROGOL) [Concomitant]
  16. CHLORASEPTIC [Concomitant]

REACTIONS (8)
  - Toxicity to various agents [None]
  - Panic attack [None]
  - Urinary tract infection [None]
  - Unresponsive to stimuli [None]
  - Cholelithiasis [None]
  - Excoriation [None]
  - Pneumonia [None]
  - Adhesion [None]
